FAERS Safety Report 5812593-8 (Version None)
Quarter: 2008Q3

REPORT INFORMATION
  Report Type: 
  Country: None (occurrence: None)
  Receive Date: 20080711
  Receipt Date: 20080701
  Transmission Date: 20090109
  Serious: Yes (Other)
  Sender: FDA-Public Use
  Company Number: 2008AL003809

PATIENT
  Age: 61 Year
  Sex: Male
  Weight: 98.4306 kg

DRUGS (1)
  1. DIGOXIN [Suspect]
     Indication: CARDIAC FAILURE CONGESTIVE
     Dosage: 0.25MG, QD, PO
     Route: 048
     Dates: start: 20030101

REACTIONS (2)
  - HYPOTENSION [None]
  - SYNCOPE [None]
